FAERS Safety Report 20492439 (Version 1)
Quarter: 2022Q1

REPORT INFORMATION
  Report Type: Spontaneous
  Country: NL (occurrence: NL)
  Receive Date: 20220219
  Receipt Date: 20220219
  Transmission Date: 20220423
  Serious: Yes (Other)
  Sender: FDA-Public Use
  Company Number: NL-Accord-252076

PATIENT
  Sex: Male

DRUGS (3)
  1. LISINOPRIL [Suspect]
     Active Substance: LISINOPRIL
     Indication: Hypertension
     Dosage: STRENGTH 20, PACKAGE SIZE 30 TABLETS
     Route: 048
     Dates: start: 20211207, end: 20220124
  2. TRAMADOL [Concomitant]
     Active Substance: TRAMADOL
     Dosage: 50-150MG DAILY
     Route: 048
     Dates: start: 20120801
  3. OXYCODONE HYDROCHLORIDE [Concomitant]
     Active Substance: OXYCODONE HYDROCHLORIDE
     Dosage: INCIDENTALLY 5-20MG/DAILY
     Route: 048
     Dates: start: 20190318

REACTIONS (2)
  - Drug ineffective [Unknown]
  - Palpitations [Recovered/Resolved]

NARRATIVE: CASE EVENT DATE: 20211220
